FAERS Safety Report 13563837 (Version 1)
Quarter: 2017Q2

REPORT INFORMATION
  Report Type: Report from Study
  Country: US (occurrence: US)
  Receive Date: 20170519
  Receipt Date: 20170519
  Transmission Date: 20170830
  Serious: Yes (Death, Other)
  Sender: FDA-Public Use
  Company Number: US-JNJFOC-20170518434

PATIENT
  Sex: Male

DRUGS (5)
  1. VITAMIN E\VITAMINS [Concomitant]
     Active Substance: .ALPHA.-TOCOPHEROL\VITAMINS
  2. ASPIRIN. [Concomitant]
     Active Substance: ASPIRIN
  3. CITRACAL [Concomitant]
     Active Substance: CALCIUM CITRATE
  4. METOPROLOL. [Concomitant]
     Active Substance: METOPROLOL
  5. IMBRUVICA [Suspect]
     Active Substance: IBRUTINIB
     Indication: CHRONIC LYMPHOCYTIC LEUKAEMIA
     Route: 048

REACTIONS (4)
  - Death [Fatal]
  - Cerebrovascular accident [Unknown]
  - Thrombosis [Unknown]
  - Lung infection [Unknown]
